FAERS Safety Report 23470790 (Version 1)
Quarter: 2024Q1

REPORT INFORMATION
  Report Type: Spontaneous
  Country: JP (occurrence: JP)
  Receive Date: 20240202
  Receipt Date: 20240202
  Transmission Date: 20240410
  Serious: Yes (Other)
  Sender: FDA-Public Use
  Company Number: JP-002147023-NVSJ2024JP001560

PATIENT
  Age: 70 Year
  Sex: Male

DRUGS (1)
  1. CERTICAN [Suspect]
     Active Substance: EVEROLIMUS
     Indication: Product used for unknown indication
     Dosage: UNK, BID,TAKEN AT 8:00 AND 16:00
     Route: 048

REACTIONS (7)
  - Diabetes mellitus [Unknown]
  - Hepatic cirrhosis [Unknown]
  - Subarachnoid haemorrhage [Unknown]
  - Hepatitis C [Unknown]
  - Hepatocellular carcinoma [Unknown]
  - Metastases to bone [Unknown]
  - Bedridden [Unknown]

NARRATIVE: CASE EVENT DATE: 20231201
